FAERS Safety Report 4341550-6 (Version None)
Quarter: 2004Q2

REPORT INFORMATION
  Report Type: 
  Country: None (occurrence: None)
  Receive Date: 20040419
  Receipt Date: 20040419
  Transmission Date: 20050107
  Serious: Yes (Hospitalization)
  Sender: FDA-Public Use
  Company Number: None

PATIENT
  Age: 44 Year
  Sex: Male
  Weight: 118.8424 kg

DRUGS (1)
  1. LOVENOX [Suspect]
     Indication: ANTICOAGULANT THERAPY
     Dosage: 120MG Q12HRS SUBCUTANEOUS
     Route: 058
     Dates: start: 20031205, end: 20031208

REACTIONS (3)
  - GASTROINTESTINAL HAEMORRHAGE [None]
  - RENAL IMPAIRMENT [None]
  - RETROPERITONEAL HAEMATOMA [None]
